FAERS Safety Report 22098765 (Version 1)
Quarter: 2023Q1

REPORT INFORMATION
  Report Type: Spontaneous
  Country: US (occurrence: US)
  Receive Date: 20230315
  Receipt Date: 20230315
  Transmission Date: 20230417
  Serious: Yes (Other)
  Sender: FDA-Public Use
  Company Number: US-SUNOVION-2023SUN000402

PATIENT
  Age: 85 Year
  Sex: Male

DRUGS (1)
  1. KYNMOBI [Suspect]
     Active Substance: APOMORPHINE HYDROCHLORIDE
     Dosage: 10 MG, QD
     Route: 060

REACTIONS (2)
  - Parkinson^s disease [Unknown]
  - Communication disorder [Unknown]
